FAERS Safety Report 6937737-6 (Version None)
Quarter: 2010Q3

REPORT INFORMATION
  Report Type: 
  Country: None (occurrence: None)
  Receive Date: 20100820
  Receipt Date: 20100820
  Transmission Date: 20110219
  Serious: Yes (Life-Threatening, Hospitalization)
  Sender: FDA-Public Use
  Company Number: None

PATIENT
  Sex: Male
  Weight: 109.3169 kg

DRUGS (2)
  1. PEGASYS [Suspect]
     Indication: HEPATITIS C
     Dosage: 180MCG -0.5ML WEEKLY SQ
     Route: 058
     Dates: start: 20100614, end: 20100720
  2. RIBASPHERE [Suspect]
     Dosage: 200 MG TWICE DAILY SQ
     Route: 058

REACTIONS (1)
  - HOSPITALISATION [None]
